FAERS Safety Report 9827571 (Version 1)
Quarter: 2014Q1

REPORT INFORMATION
  Report Type: Spontaneous
  Country: US (occurrence: US)
  Receive Date: 20140117
  Receipt Date: 20140117
  Transmission Date: 20141002
  Serious: No
  Sender: FDA-Public Use
  Company Number: US-BIOGENIDEC-2014BI002195

PATIENT
  Age: 51 Year
  Sex: Female

DRUGS (10)
  1. TECFIDERA [Suspect]
     Indication: MULTIPLE SCLEROSIS
     Route: 048
     Dates: start: 20131125
  2. TECFIDERA [Suspect]
     Indication: MULTIPLE SCLEROSIS
     Route: 048
     Dates: start: 201401
  3. ADVIL [Concomitant]
  4. CALCIUM [Concomitant]
  5. IBUPROFEN [Concomitant]
  6. K-PAX IMMUNE SUPPORT [Concomitant]
  7. MODAFINIL [Concomitant]
  8. NEXIUM [Concomitant]
  9. VITAMIN D [Concomitant]
  10. WELLBUTRIN SR [Concomitant]

REACTIONS (4)
  - Prescribed underdose [Unknown]
  - Abdominal discomfort [Unknown]
  - Nausea [Unknown]
  - Abdominal pain [Unknown]
